FAERS Safety Report 17397657 (Version 1)
Quarter: 2020Q1

REPORT INFORMATION
  Report Type: Spontaneous
  Country: ZA (occurrence: ZA)
  Receive Date: 20200210
  Receipt Date: 20200210
  Transmission Date: 20200409
  Serious: Yes (Death, Other)
  Sender: FDA-Public Use
  Company Number: ZA-PFIZER INC-2020054455

PATIENT
  Sex: Female

DRUGS (2)
  1. TYGACIL [Suspect]
     Active Substance: TIGECYCLINE
     Indication: OSTEOMYELITIS
     Dosage: 1 DOSE
  2. TYGACIL [Suspect]
     Active Substance: TIGECYCLINE
     Indication: DEVICE RELATED INFECTION

REACTIONS (1)
  - Death [Fatal]
